FAERS Safety Report 5514121-3 (Version None)
Quarter: 2007Q4

REPORT INFORMATION
  Report Type: 
  Country: None (occurrence: None)
  Receive Date: 20071113
  Receipt Date: 20071112
  Transmission Date: 20080405
  Serious: Yes (Other)
  Sender: FDA-Public Use
  Company Number: GB-BRISTOL-MYERS SQUIBB COMPANY-13976022

PATIENT
  Age: 35 Year
  Sex: Male

DRUGS (1)
  1. HYDROXYUREA [Suspect]
     Indication: THROMBOCYTHAEMIA

REACTIONS (1)
  - AZOOSPERMIA [None]
